FAERS Safety Report 23662586 (Version 2)
Quarter: 2024Q2

REPORT INFORMATION
  Report Type: Spontaneous
  Country: ES (occurrence: ES)
  Receive Date: 20240322
  Receipt Date: 20240403
  Transmission Date: 20240717
  Serious: Yes (Other)
  Sender: FDA-Public Use
  Company Number: ES-BIOVITRUM-2024-ES-004364

PATIENT

DRUGS (3)
  1. PEGCETACOPLAN [Suspect]
     Active Substance: PEGCETACOPLAN
     Indication: Paroxysmal nocturnal haemoglobinuria
     Dosage: UNK
     Dates: start: 20230717
  2. RAVULIZUMAB [Concomitant]
     Active Substance: RAVULIZUMAB
     Indication: Product used for unknown indication
     Dates: start: 20240304
  3. COVID-19 vaccination [Concomitant]
     Indication: Product used for unknown indication
     Dates: start: 20231031

REACTIONS (4)
  - Haemolysis [Unknown]
  - Condition aggravated [Unknown]
  - Bladder injury [Unknown]
  - Bladder hypertrophy [Unknown]

NARRATIVE: CASE EVENT DATE: 20231218
